FAERS Safety Report 15947655 (Version 4)
Quarter: 2019Q3

REPORT INFORMATION
  Report Type: Spontaneous
  Country: US (occurrence: US)
  Receive Date: 20190211
  Receipt Date: 20190806
  Transmission Date: 20191004
  Serious: No
  Sender: FDA-Public Use
  Company Number: US-PFIZER INC-2019058298

PATIENT
  Age: 6 Year
  Sex: Male

DRUGS (2)
  1. AVASTIN [Concomitant]
     Active Substance: BEVACIZUMAB
     Indication: BRAIN NEOPLASM
     Dosage: 200 MG, CYCLIC (EVERY 2 WEEKLY)
     Route: 042
     Dates: start: 20120427, end: 20130816
  2. IRINOTECAN HCL [Suspect]
     Active Substance: IRINOTECAN HYDROCHLORIDE
     Indication: BRAIN NEOPLASM
     Dosage: 100 MG, CYCLIC (EVERY 2 WEEKS)
     Route: 042
     Dates: start: 20130215, end: 20130816

REACTIONS (5)
  - Off label use [Unknown]
  - Neoplasm progression [Unknown]
  - Vomiting [Unknown]
  - Product use in unapproved indication [Unknown]
  - Nausea [Unknown]

NARRATIVE: CASE EVENT DATE: 20130215
